FAERS Safety Report 25721320 (Version 2)
Quarter: 2025Q3

REPORT INFORMATION
  Report Type: Spontaneous
  Country: US (occurrence: US)
  Receive Date: 20250825
  Receipt Date: 20250923
  Transmission Date: 20251021
  Serious: No
  Sender: CSL BEHRING
  Company Number: US-BEH-2025216362

PATIENT
  Sex: Female

DRUGS (1)
  1. HIZENTRA [Suspect]
     Active Substance: HUMAN IMMUNOGLOBULIN G
     Indication: Immunodeficiency common variable
     Dosage: 10 G, QW
     Route: 058
     Dates: start: 202502

REACTIONS (8)
  - Gastrointestinal infection [Unknown]
  - Diarrhoea [Unknown]
  - Dehydration [Unknown]
  - Urine output decreased [Unknown]
  - Decreased appetite [Unknown]
  - Infection [Unknown]
  - Illness [Unknown]
  - Decreased appetite [Unknown]
